FAERS Safety Report 8339553-X (Version None)
Quarter: 2012Q2

REPORT INFORMATION
  Report Type: 
  Country: None (occurrence: None)
  Receive Date: 20120507
  Receipt Date: 20120430
  Transmission Date: 20120825
  Serious: Yes (Other)
  Sender: FDA-Public Use
  Company Number: PHHY2012FR031375

PATIENT
  Sex: Female
  Weight: 80 kg

DRUGS (3)
  1. ATARAX [Concomitant]
     Indication: ANXIETY
     Dosage: 25 MG, DAILY
     Dates: start: 20080101
  2. CRESTOR [Concomitant]
     Indication: HYPERCHOLESTEROLAEMIA
     Dosage: 10 MG, DAILY
     Dates: start: 20080101
  3. FEMARA [Suspect]
     Indication: BREAST CANCER
     Dosage: 2.5 MG, QD
     Route: 048
     Dates: start: 20100601

REACTIONS (4)
  - TENDONITIS [None]
  - CATARACT [None]
  - VISUAL ACUITY REDUCED [None]
  - ARTHRALGIA [None]
